FAERS Safety Report 11470613 (Version 1)
Quarter: 2015Q3

REPORT INFORMATION
  Report Type: Report from Study
  Country: KR (occurrence: KR)
  Receive Date: 20150908
  Receipt Date: 20150908
  Transmission Date: 20151125
  Serious: Yes (Death)
  Sender: FDA-Public Use
  Company Number: KR-SA-2015SA081892

PATIENT
  Age: 56 Year
  Sex: Female
  Weight: 56 kg

DRUGS (15)
  1. CODAEWON FORTE [Concomitant]
     Route: 048
     Dates: start: 20150527, end: 20150529
  2. MEGEROL [Concomitant]
     Route: 048
     Dates: start: 20150527, end: 20150527
  3. CALCIUM CHLORIDE. [Concomitant]
     Active Substance: CALCIUM CHLORIDE
     Dates: start: 20150526, end: 20150526
  4. TANTUM [Concomitant]
     Active Substance: BENZYDAMINE HYDROCHLORIDE
     Dosage: MOUTHWASH, GARGLE
     Route: 048
     Dates: start: 20150604, end: 20150604
  5. ELPLAT [Suspect]
     Active Substance: OXALIPLATIN
     Indication: GASTRIC CANCER
     Route: 041
     Dates: start: 20150522, end: 20150522
  6. DIFLUCAN [Concomitant]
     Active Substance: FLUCONAZOLE
     Dates: start: 20150604, end: 20150605
  7. GENTRISONE [Concomitant]
     Dosage: OINTMENT, CREAM
     Dates: start: 20150604
  8. PLACEBO [Suspect]
     Active Substance: UNSPECIFIED INGREDIENT
     Indication: GASTRIC CANCER
     Dosage: FORM:GRANULE
     Route: 048
     Dates: start: 20150522, end: 20150529
  9. PHENIRAMINE [Concomitant]
     Active Substance: PHENIRAMINE
     Dates: start: 20150604, end: 20150604
  10. LANSTON [Concomitant]
     Active Substance: LANSOPRAZOLE
     Route: 048
     Dates: start: 20150510, end: 20150605
  11. MACPERAN [Concomitant]
     Dates: start: 20150507, end: 20150604
  12. KYTRIL [Concomitant]
     Active Substance: GRANISETRON HYDROCHLORIDE
     Route: 048
     Dates: start: 20150525, end: 20150527
  13. PRIVITUSS [Concomitant]
     Route: 048
     Dates: start: 20150519, end: 20150605
  14. ALBUMIN [Concomitant]
     Active Substance: ALBUMIN (HUMAN)
     Dates: start: 20150526, end: 20150526
  15. ULCERLMIN [Concomitant]
     Active Substance: SUCRALFATE
     Route: 048
     Dates: start: 20150604, end: 20150605

REACTIONS (1)
  - Oesophageal haemorrhage [Fatal]

NARRATIVE: CASE EVENT DATE: 20150604
